FAERS Safety Report 9077808 (Version 1)
Quarter: 2013Q1

REPORT INFORMATION
  Report Type: Report from Study
  Country: US (occurrence: US)
  Receive Date: 20130130
  Receipt Date: 20130130
  Transmission Date: 20140127
  Serious: No
  Sender: FDA-Public Use
  Company Number: US-ABBOTT-12P-163-0954607-00

PATIENT
  Sex: Female

DRUGS (3)
  1. HUMIRA 40 MG/0.8 ML PEN [Suspect]
     Indication: PSORIASIS
     Dosage: 2 40 MG PENS UNDER THE SKIN DAY 1
     Route: 058
     Dates: start: 201206, end: 201206
  2. HUMIRA 40 MG/0.8 ML PEN [Suspect]
     Dosage: ONE 40 MG PEN DAY 8
     Dates: start: 201206
  3. HUMIRA 40 MG/0.8 ML PEN [Suspect]
     Dosage: ONE 40 MG PEN DAY 22
     Dates: end: 201207

REACTIONS (1)
  - Hypersensitivity [Unknown]
